FAERS Safety Report 8782887 (Version 2)
Quarter: 2012Q4

REPORT INFORMATION
  Report Type: 
  Country: US (occurrence: US)
  Receive Date: 20120913
  Receipt Date: 20120925
  Transmission Date: 20130627
  Serious: No
  Sender: FDA-Public Use
  Company Number: US-ASTRAZENECA-2012SE70868

PATIENT
  Age: 50 Year
  Sex: Female

DRUGS (1)
  1. SYMBICORT PMDI [Suspect]
     Route: 055

REACTIONS (4)
  - Asthma [Unknown]
  - Dyspnoea [Unknown]
  - Intentional drug misuse [Unknown]
  - Drug dose omission [Unknown]
